FAERS Safety Report 5503854-0 (Version None)
Quarter: 2007Q4

REPORT INFORMATION
  Report Type: 
  Country: None (occurrence: None)
  Receive Date: 20071030
  Receipt Date: 20071022
  Transmission Date: 20080405
  Serious: Yes (Other)
  Sender: FDA-Public Use
  Company Number: 2007324560

PATIENT
  Age: 7 Year
  Sex: Male
  Weight: 22.8 kg

DRUGS (1)
  1. LISTERINE AGENT COOL BLUE BUBBLE BLAST (NO ACTIVE INGREDIENT) [Suspect]
     Indication: DENTAL PLAQUE
     Dosage: ORAL
     Route: 048
     Dates: start: 20070301

REACTIONS (8)
  - EAR PAIN [None]
  - HEADACHE [None]
  - JOINT STIFFNESS [None]
  - NEUTROPENIA [None]
  - PAIN IN EXTREMITY [None]
  - PHARYNGOLARYNGEAL PAIN [None]
  - PYREXIA [None]
  - THROMBOCYTOPENIA [None]
